FAERS Safety Report 26213553 (Version 1)
Quarter: 2025Q4

REPORT INFORMATION
  Report Type: Spontaneous
  Country: IR (occurrence: IR)
  Receive Date: 20251230
  Receipt Date: 20251230
  Transmission Date: 20260119
  Serious: Yes (Other)
  Sender: AMGEN
  Company Number: IR-AMGEN-IRNSP2025253085

PATIENT

DRUGS (4)
  1. PEGFILGRASTIM [Suspect]
     Active Substance: PEGFILGRASTIM
     Indication: Prophylaxis
     Dosage: UNK UNK, QD
     Route: 065
  2. ADRIAMYCIN [Suspect]
     Active Substance: DOXORUBICIN HYDROCHLORIDE
     Indication: Breast cancer
     Dosage: UNK UNK, QD
     Route: 065
  3. CYCLOPHOSPHAMIDE [Suspect]
     Active Substance: CYCLOPHOSPHAMIDE
     Indication: Breast cancer
     Dosage: UNK UNK, QD
     Route: 065
  4. DESLORATADINE [Suspect]
     Active Substance: DESLORATADINE
     Indication: Breast cancer
     Dosage: 5 MILLIGRAM, QD
     Route: 048

REACTIONS (2)
  - Breast cancer metastatic [Unknown]
  - Therapy partial responder [Unknown]
